FAERS Safety Report 11927941 (Version 1)
Quarter: 2016Q1

REPORT INFORMATION
  Report Type: Report from Study
  Country: IR (occurrence: IR)
  Receive Date: 20160119
  Receipt Date: 20160119
  Transmission Date: 20160526
  Serious: Yes (Other)
  Sender: FDA-Public Use
  Company Number: IR-MYLANLABS-2016M1002187

PATIENT

DRUGS (1)
  1. TRAMADOL. [Suspect]
     Active Substance: TRAMADOL
     Indication: PRODUCT USED FOR UNKNOWN INDICATION
     Route: 048

REACTIONS (2)
  - Hypoglycaemia [Unknown]
  - Overdose [Unknown]
